FAERS Safety Report 18351470 (Version 3)
Quarter: 2020Q4

REPORT INFORMATION
  Report Type: Spontaneous
  Country: ES (occurrence: ES)
  Receive Date: 20201007
  Receipt Date: 20201205
  Transmission Date: 20210114
  Serious: Yes (Death, Life-Threatening, Other)
  Sender: FDA-Public Use
  Company Number: ES-AUROBINDO-AUR-APL-2020-050820

PATIENT

DRUGS (4)
  1. VALGANCICLOVIR. [Suspect]
     Active Substance: VALGANCICLOVIR
     Indication: CYTOMEGALOVIRUS INFECTION
     Dosage: 900 MILLIGRAM, TWO TIMES A DAY
     Route: 048
  2. GANCICLOVIR. [Suspect]
     Active Substance: GANCICLOVIR
     Indication: CYTOMEGALOVIRUS INFECTION
     Dosage: 5 MILLIGRAM/KILOGRAM, TWO TIMES A DAY, INDUCTION
     Route: 042
  3. FOSCARNET [Suspect]
     Active Substance: FOSCARNET
     Indication: CYTOMEGALOVIRUS INFECTION
     Dosage: 60 MILLIGRAM/KILOGRAM, TWO TIMES A DAY
     Route: 042
  4. GANCICLOVIR. [Suspect]
     Active Substance: GANCICLOVIR
     Dosage: 6 MILLIGRAM/KILOGRAM, ONCE A DAY, MAINTANENCE
     Route: 042

REACTIONS (6)
  - Acute graft versus host disease [Fatal]
  - Cytomegalovirus infection reactivation [Fatal]
  - Viral mutation identified [Fatal]
  - Neutropenia [Fatal]
  - Rash [Fatal]
  - Colitis [Fatal]
